FAERS Safety Report 18202567 (Version 1)
Quarter: 2020Q3

REPORT INFORMATION
  Report Type: Spontaneous
  Country: US (occurrence: US)
  Receive Date: 20200826
  Receipt Date: 20200826
  Transmission Date: 20201103
  Serious: No
  Sender: FDA-Public Use
  Company Number: None

PATIENT

DRUGS (1)
  1. BUPIVACAINE / DEXTROSE 8.25% INJECTION [Suspect]
     Active Substance: BUPIVACAINE\DEXTROSE
     Indication: SPINAL ANAESTHESIA
     Route: 008
     Dates: start: 20200819, end: 20200819

REACTIONS (1)
  - Drug ineffective [None]
